FAERS Safety Report 17818056 (Version 1)
Quarter: 2020Q2

REPORT INFORMATION
  Report Type: Other
  Country: US (occurrence: US)
  Receive Date: 20200522
  Receipt Date: 20200522
  Transmission Date: 20200714
  Serious: No
  Sender: FDA-Public Use
  Company Number: US-LEADIANT BIOSCIENCES, INC.-2020STPI000052

PATIENT

DRUGS (8)
  1. VITAMIN D [VITAMIN D NOS] [Concomitant]
     Active Substance: VITAMIN D NOS
  2. REVCOVI [Suspect]
     Active Substance: ELAPEGADEMASE-LVLR
     Indication: COMBINED IMMUNODEFICIENCY
     Dosage: 4.5 MILLILITER, BIW
     Route: 030
     Dates: start: 20190118
  3. VITAMIN B COMPLEX [Concomitant]
     Active Substance: CYANOCOBALAMIN\DEXPANTHENOL\NIACINAMIDE\PYRIDOXINE HYDROCHLORIDE\RIBOFLAVIN 5^-PHOSPHATE SODIUM\THIAMINE HYDROCHLORIDE\VITAMIN B COMPLEX
  4. DEXTROAMPHET SACCHARAT, AMPHET ASPARTATE, DEXTROAMPHET SULFATE AND AMPHET SULFAT [Concomitant]
     Active Substance: AMPHETAMINE ASPARTATE\AMPHETAMINE SULFATE\DEXTROAMPHETAMINE SACCHARATE\DEXTROAMPHETAMINE SULFATE
  5. ONDANSETRON [Concomitant]
     Active Substance: ONDANSETRON
  6. TURMERIC [CURCUMA LONGA ROOT] [Concomitant]
  7. NORTREL [LEVONORGESTREL] [Concomitant]
  8. OMEPRAZOLE. [Concomitant]
     Active Substance: OMEPRAZOLE

REACTIONS (1)
  - Injection site pain [Unknown]
